FAERS Safety Report 13669461 (Version 1)
Quarter: 2017Q2

REPORT INFORMATION
  Report Type: Spontaneous
  Country: IT (occurrence: IT)
  Receive Date: 20170620
  Receipt Date: 20170620
  Transmission Date: 20170830
  Serious: Yes (Other)
  Sender: FDA-Public Use
  Company Number: IT-ASTRAZENECA-2017SE62135

PATIENT
  Age: 52 Year
  Sex: Female

DRUGS (2)
  1. DENOSUMAB [Concomitant]
     Active Substance: DENOSUMAB
     Indication: METASTASIS
     Dosage: 1 VIAL SUBCUTANEOUS EVERY 28 DAYS
     Route: 058
     Dates: start: 201610
  2. FASLODEX [Suspect]
     Active Substance: FULVESTRANT
     Indication: METASTASIS
     Dosage: 500.0MG UNKNOWN
     Route: 030
     Dates: start: 201608

REACTIONS (6)
  - Malignant neoplasm progression [Unknown]
  - Spinal compression fracture [Unknown]
  - Carbohydrate antigen 15-3 increased [Unknown]
  - Pubis fracture [Unknown]
  - Condition aggravated [Unknown]
  - Pain [Unknown]
